FAERS Safety Report 19171630 (Version 1)
Quarter: 2021Q2

REPORT INFORMATION
  Report Type: Spontaneous
  Country: US (occurrence: US)
  Receive Date: 20210423
  Receipt Date: 20210423
  Transmission Date: 20210717
  Serious: No
  Sender: FDA-Public Use
  Company Number: US-SA-2021SA131024

PATIENT
  Age: 83 Year
  Sex: Male

DRUGS (3)
  1. DUPIXENT [Suspect]
     Active Substance: DUPILUMAB
     Indication: DERMATITIS
  2. DUPIXENT [Suspect]
     Active Substance: DUPILUMAB
     Indication: AUTOIMMUNE DISORDER
     Dosage: 300 MG, QOW
     Dates: start: 202003
  3. PREDNISONE. [Suspect]
     Active Substance: PREDNISONE

REACTIONS (4)
  - Adverse event [Unknown]
  - Product storage error [Unknown]
  - Therapeutic product effect delayed [Unknown]
  - Product use in unapproved indication [Unknown]

NARRATIVE: CASE EVENT DATE: 202003
